FAERS Safety Report 23270705 (Version 1)
Quarter: 2023Q4

REPORT INFORMATION
  Report Type: Spontaneous
  Country: ES (occurrence: ES)
  Receive Date: 20231207
  Receipt Date: 20231207
  Transmission Date: 20240109
  Serious: Yes (Other)
  Sender: FDA-Public Use
  Company Number: ES-AEMPS-1451078

PATIENT
  Age: 89 Year
  Sex: Female

DRUGS (4)
  1. VALSARTAN [Suspect]
     Active Substance: VALSARTAN
     Indication: Cardiac failure congestive
     Dosage: 40 MILLIGRAM, ONCE A DAY (0-0.5-0)
     Route: 048
     Dates: start: 20231101, end: 20231106
  2. FUROSEMIDE [Suspect]
     Active Substance: FUROSEMIDE
     Indication: Cardiac failure congestive
     Dosage: 40 MILLIGRAM, ONCE A DAY 960MG /D?A IV EL 31/10/2023 HASTA QUE SUSPENDE EL 06/11/2023,   SE RENUEVA
     Route: 048
     Dates: start: 20141216, end: 20231031
  3. FUROSEMIDE [Suspect]
     Active Substance: FUROSEMIDE
     Dosage: 60 MILLIGRAM, ONCE A DAY
     Route: 042
     Dates: start: 20231031, end: 20231106
  4. FUROSEMIDE [Suspect]
     Active Substance: FUROSEMIDE
     Dosage: 40 MILLIGRAM, ONCE A DAY
     Route: 048
     Dates: start: 20231111

REACTIONS (1)
  - Hyponatraemia [Recovered/Resolved]

NARRATIVE: CASE EVENT DATE: 20231105
